FAERS Safety Report 25356907 (Version 3)
Quarter: 2025Q3

REPORT INFORMATION
  Report Type: Spontaneous
  Country: JP (occurrence: JP)
  Receive Date: 20250526
  Receipt Date: 20250817
  Transmission Date: 20251020
  Serious: Yes (Hospitalization, Other)
  Sender: GLAXOSMITHKLINE
  Company Number: JP-GSKJP-JP2025JPN062306AA

PATIENT
  Age: 92 Year
  Sex: Female
  Weight: 43.5 kg

DRUGS (8)
  1. DAPRODUSTAT [Suspect]
     Active Substance: DAPRODUSTAT
     Indication: Nephrogenic anaemia
     Dosage: 2 MG, 1D
  2. SODIUM FERROUS CITRATE [Suspect]
     Active Substance: SODIUM FERROUS CITRATE
     Indication: Iron deficiency
  3. VONOPRAZAN FUMARATE [Concomitant]
     Active Substance: VONOPRAZAN FUMARATE
  4. KALLIDINOGENASE [Concomitant]
     Active Substance: KALLIDINOGENASE
  5. URSO [Concomitant]
     Active Substance: URSODIOL
  6. DIETARY SUPPLEMENT\UBIDECARENONE [Concomitant]
     Active Substance: DIETARY SUPPLEMENT\UBIDECARENONE
  7. ENTRESTO [Concomitant]
     Active Substance: SACUBITRIL\VALSARTAN
  8. NITROGLYCERIN [Concomitant]
     Active Substance: NITROGLYCERIN

REACTIONS (9)
  - Pulmonary embolism [Unknown]
  - Respiratory failure [Unknown]
  - Pneumonia [Unknown]
  - Aortic valve stenosis [Unknown]
  - Pulmonary hypertension [Unknown]
  - Cardiac failure [Unknown]
  - Haemoglobin increased [Recovering/Resolving]
  - Hypophagia [Unknown]
  - Dyspnoea [Unknown]

NARRATIVE: CASE EVENT DATE: 20250307
